FAERS Safety Report 7485708-6 (Version None)
Quarter: 2011Q2

REPORT INFORMATION
  Report Type: 
  Country: None (occurrence: None)
  Receive Date: 20110517
  Receipt Date: 20110509
  Transmission Date: 20111010
  Serious: Yes (Hospitalization)
  Sender: FDA-Public Use
  Company Number: US-CELGENEUS-163-21880-11051277

PATIENT
  Sex: Male

DRUGS (5)
  1. CAPTOPRIL [Concomitant]
     Route: 065
  2. REMERON [Concomitant]
     Route: 065
  3. REVLIMID [Suspect]
     Indication: MULTIPLE MYELOMA
     Dosage: 10 MILLIGRAM
     Route: 048
     Dates: start: 20081021
  4. TRAVATAN [Concomitant]
     Route: 065
  5. ZOCOR [Concomitant]
     Route: 065

REACTIONS (1)
  - HIATUS HERNIA [None]
